FAERS Safety Report 4606519-2 (Version None)
Quarter: 2005Q2

REPORT INFORMATION
  Report Type: 
  Country: None (occurrence: None)
  Receive Date: 20050223
  Receipt Date: 20041006
  Transmission Date: 20051028
  Serious: Yes (Life-Threatening, Hospitalization)
  Sender: FDA-Public Use
  Company Number: WAES 0410USA00965

PATIENT
  Age: 78 Year
  Sex: Male

DRUGS (5)
  1. ZOCOR [Suspect]
     Indication: BLOOD CHOLESTEROL INCREASED
     Dosage: 80 MG/DAILY/PO
     Route: 048
     Dates: start: 20031201, end: 20040901
  2. ACIPHEX [Concomitant]
  3. SYNTHROID [Concomitant]
  4. TIAZAC [Concomitant]
  5. ZOCOR [Suspect]
     Indication: BLOOD CHOLESTEROL INCREASED
     Dosage: 40 MG/DAILY/ PO
     Route: 048
     Dates: end: 20031201

REACTIONS (1)
  - RHABDOMYOLYSIS [None]
